FAERS Safety Report 24315584 (Version 1)
Quarter: 2024Q3

REPORT INFORMATION
  Report Type: Report from Study
  Country: US (occurrence: US)
  Receive Date: 20240913
  Receipt Date: 20240913
  Transmission Date: 20241016
  Serious: Yes (Hospitalization)
  Sender: PARATEK PHARMACEUTICALS
  Company Number: US-PARATEK PHARMACEUTICALS, INC.-2024PTK00801

PATIENT
  Age: 78 Year
  Sex: Female

DRUGS (17)
  1. NUZYRA [Suspect]
     Active Substance: OMADACYCLINE
     Dosage: UNK
     Route: 065
     Dates: start: 202408, end: 202408
  2. NUZYRA [Suspect]
     Active Substance: OMADACYCLINE
     Dosage: 300 MG, 1X/DAY
     Route: 048
     Dates: start: 20240831, end: 20240901
  3. ALLOPURINOL [Concomitant]
     Active Substance: ALLOPURINOL
  4. ASPIRIN [Concomitant]
     Active Substance: ASPIRIN
  5. BUDESONIDE [Concomitant]
     Active Substance: BUDESONIDE
  6. ERYTHROMYCIN [Concomitant]
     Active Substance: ERYTHROMYCIN
  7. TYLENOL FOR CHILDREN [Concomitant]
  8. MINERALS\VITAMINS [Concomitant]
     Active Substance: MINERALS\VITAMINS
  9. VITAMIN D3 [Concomitant]
     Active Substance: CHOLECALCIFEROL
  10. ZYRTEC [Concomitant]
     Active Substance: CETIRIZINE HYDROCHLORIDE
  11. JARDIANCE [Concomitant]
     Active Substance: EMPAGLIFLOZIN
  12. LASIX [Concomitant]
     Active Substance: FUROSEMIDE
  13. MAGNESIUM [Concomitant]
     Active Substance: MAGNESIUM
  14. METOPROLOL SUCCINATE [Concomitant]
     Active Substance: METOPROLOL SUCCINATE
  15. FLONASE [Concomitant]
     Active Substance: FLUTICASONE PROPIONATE
  16. SINGULAIR [Concomitant]
     Active Substance: MONTELUKAST SODIUM
  17. ALBUTEROL [Concomitant]
     Active Substance: ALBUTEROL
     Dosage: 0.63MG/3ML

REACTIONS (2)
  - Hypotension [Not Recovered/Not Resolved]
  - Contraindicated product administered [Recovered/Resolved]

NARRATIVE: CASE EVENT DATE: 20240801
